FAERS Safety Report 19438267 (Version 2)
Quarter: 2021Q2

REPORT INFORMATION
  Report Type: Spontaneous
  Country: FR (occurrence: FR)
  Receive Date: 20210618
  Receipt Date: 20210622
  Transmission Date: 20210717
  Serious: Yes (Other)
  Sender: FDA-Public Use
  Company Number: FR-PFIZER INC-2021662822

PATIENT
  Age: 44 Year
  Sex: Male

DRUGS (2)
  1. AZITHROMYCINE [Suspect]
     Active Substance: AZITHROMYCIN
     Indication: COVID-19
     Dosage: 250 MG, ONCE A DAY (QD)
     Route: 048
     Dates: start: 20210504, end: 20210510
  2. PANTOPRAZOLE [Suspect]
     Active Substance: PANTOPRAZOLE
     Dosage: 20 MG, ONCE A DAY (QD)
     Route: 048
     Dates: end: 20210510

REACTIONS (2)
  - Hepatic cytolysis [Recovered/Resolved]
  - Off label use [Unknown]

NARRATIVE: CASE EVENT DATE: 20210504
